FAERS Safety Report 12876606 (Version 3)
Quarter: 2017Q1

REPORT INFORMATION
  Report Type: Spontaneous
  Country: US (occurrence: US)
  Receive Date: 20161024
  Receipt Date: 20170126
  Transmission Date: 20170428
  Serious: Yes (Other)
  Sender: FDA-Public Use
  Company Number: US-PFIZER INC-2016484721

PATIENT
  Age: 26 Year
  Sex: Female
  Weight: 88.53 kg

DRUGS (10)
  1. DEXAMETHASONE. [Suspect]
     Active Substance: DEXAMETHASONE
     Indication: B-CELL TYPE ACUTE LEUKAEMIA
     Dosage: UNK UNK, CYCLIC
     Dates: start: 201604
  2. PEGASPARGASE [Suspect]
     Active Substance: PEGASPARGASE
     Indication: B-CELL TYPE ACUTE LEUKAEMIA
     Dosage: UNK UNK, CYCLIC
     Dates: start: 201604
  3. VINCRISTINE SULFATE. [Suspect]
     Active Substance: VINCRISTINE SULFATE
     Indication: B-CELL TYPE ACUTE LEUKAEMIA
     Dosage: UNK UNK, CYCLIC
     Dates: start: 201604
  4. VINCRISTINE SULFATE. [Suspect]
     Active Substance: VINCRISTINE SULFATE
     Indication: ACUTE LYMPHOCYTIC LEUKAEMIA REFRACTORY
  5. VINCRISTINE SULFATE. [Suspect]
     Active Substance: VINCRISTINE SULFATE
     Indication: MALIGNANT NEOPLASM PROGRESSION
  6. DEXAMETHASONE. [Suspect]
     Active Substance: DEXAMETHASONE
     Indication: ACUTE LYMPHOCYTIC LEUKAEMIA REFRACTORY
  7. MITOXANTRONE HCL [Suspect]
     Active Substance: MITOXANTRONE HYDROCHLORIDE
     Indication: DISEASE PROGRESSION
  8. DEXAMETHASONE. [Suspect]
     Active Substance: DEXAMETHASONE
     Indication: MALIGNANT NEOPLASM PROGRESSION
  9. MITOXANTRONE HCL [Suspect]
     Active Substance: MITOXANTRONE HYDROCHLORIDE
     Indication: B-CELL TYPE ACUTE LEUKAEMIA
     Dosage: UNK UNK, CYCLIC
     Dates: start: 201604
  10. PEGASPARGASE [Suspect]
     Active Substance: PEGASPARGASE
     Indication: DISEASE PROGRESSION

REACTIONS (11)
  - Febrile neutropenia [Unknown]
  - Transfusion reaction [Unknown]
  - Thrombocytopenia [Unknown]
  - Herpes zoster [Unknown]
  - Clostridium difficile colitis [Unknown]
  - Neutropenic sepsis [Unknown]
  - Menorrhagia [Unknown]
  - Cytopenia [Unknown]
  - Transfusion-related acute lung injury [Unknown]
  - Depression [Unknown]
  - Neoplasm progression [Unknown]

NARRATIVE: CASE EVENT DATE: 2016
